FAERS Safety Report 23175559 (Version 1)
Quarter: 2023Q4

REPORT INFORMATION
  Report Type: Spontaneous
  Country: FR (occurrence: FR)
  Receive Date: 20231113
  Receipt Date: 20231113
  Transmission Date: 20240110
  Serious: Yes (Hospitalization, Other)
  Sender: FDA-Public Use
  Company Number: FR-AFSSAPS-TS2023001369

PATIENT
  Age: 58 Year
  Sex: Male
  Weight: 83 kg

DRUGS (7)
  1. FUROSEMIDE [Suspect]
     Active Substance: FUROSEMIDE
     Indication: Oedema peripheral
     Dosage: 40 MILLIGRAM, 1 TOTAL
     Route: 048
     Dates: start: 20231018, end: 20231018
  2. GEMCITABINE [Suspect]
     Active Substance: GEMCITABINE
     Indication: Cholangiocarcinoma
     Dosage: 1939 MILLIGRAM, 1 CYCLICAL
     Route: 042
     Dates: start: 20231010, end: 20231017
  3. ONDANSETRON [Suspect]
     Active Substance: ONDANSETRON
     Indication: Premedication
     Dosage: 8 MILLIGRAM, 1 CYCLICAL
     Route: 048
     Dates: start: 20231010, end: 20231017
  4. ACETAMINOPHEN [Suspect]
     Active Substance: ACETAMINOPHEN
     Indication: Product used for unknown indication
     Dosage: 1 GRAM, 1 TOTAL
     Route: 048
     Dates: start: 20231015, end: 20231015
  5. PREDNISOLONE [Suspect]
     Active Substance: PREDNISOLONE
     Indication: Premedication
     Dosage: 80 MILLIGRAM, 1 CYCLICAL
     Route: 048
     Dates: start: 20231010, end: 20231017
  6. CISPLATIN [Suspect]
     Active Substance: CISPLATIN
     Indication: Cholangiocarcinoma
     Dosage: 49 MILLIGRAM, 1 CYCLICAL
     Route: 042
     Dates: start: 20231010, end: 20231017
  7. IMFINZI [Suspect]
     Active Substance: DURVALUMAB
     Indication: Cholangiocarcinoma
     Dosage: 1500 MILLIGRAM, 1 TOTAL
     Route: 042
     Dates: start: 20231010, end: 20231010

REACTIONS (2)
  - Hepatic cytolysis [Recovering/Resolving]
  - Rash [Recovering/Resolving]

NARRATIVE: CASE EVENT DATE: 20231018
